FAERS Safety Report 20652118 (Version 5)
Quarter: 2022Q4

REPORT INFORMATION
  Report Type: Report from Study
  Country: MX (occurrence: MX)
  Receive Date: 20220330
  Receipt Date: 20221003
  Transmission Date: 20230113
  Serious: Yes (Hospitalization, Other)
  Sender: FDA-Public Use
  Company Number: MX-NOVARTISPH-NVSC2022MX070716

PATIENT
  Sex: Male

DRUGS (1)
  1. TASIGNA [Suspect]
     Active Substance: NILOTINIB
     Indication: Chronic myeloid leukaemia
     Dosage: UNK
     Route: 048

REACTIONS (29)
  - Platelet count decreased [Unknown]
  - Feeling abnormal [Recovering/Resolving]
  - Malaise [Unknown]
  - COVID-19 [Unknown]
  - Anaemia [Unknown]
  - Pain in extremity [Recovering/Resolving]
  - Vomiting [Recovering/Resolving]
  - Diarrhoea [Recovering/Resolving]
  - Fatigue [Unknown]
  - Retinal detachment [Unknown]
  - Haemorrhage [Unknown]
  - Syncope [Unknown]
  - Visual impairment [Unknown]
  - Dengue fever [Unknown]
  - Rheumatic disorder [Unknown]
  - Discomfort [Unknown]
  - Groin pain [Unknown]
  - Anger [Unknown]
  - Helplessness [Unknown]
  - Illness [Unknown]
  - Crying [Unknown]
  - Tendon pain [Unknown]
  - Musculoskeletal chest pain [Unknown]
  - Weight decreased [Unknown]
  - Pain [Unknown]
  - Hypoaesthesia [Unknown]
  - Bone pain [Unknown]
  - Body temperature increased [Unknown]
  - Epistaxis [Unknown]
